FAERS Safety Report 5145606-X (Version None)
Quarter: 2006Q4

REPORT INFORMATION
  Report Type: 
  Country: None (occurrence: None)
  Receive Date: 20061101
  Receipt Date: 20061027
  Transmission Date: 20070319
  Serious: No
  Sender: FDA-Public Use
  Company Number: HQWYE802230OCT06

PATIENT
  Sex: Male

DRUGS (1)
  1. TYGACIL [Suspect]
     Indication: DRUG USE FOR UNKNOWN INDICATION
     Dosage: INTRAVENOUS
     Route: 042
     Dates: start: 20061001

REACTIONS (1)
  - JAUNDICE CHOLESTATIC [None]
